FAERS Safety Report 19484629 (Version 1)
Quarter: 2021Q3

REPORT INFORMATION
  Report Type: Other
  Country: FR (occurrence: FR)
  Receive Date: 20210701
  Receipt Date: 20210701
  Transmission Date: 20211014
  Serious: Yes (Other)
  Sender: FDA-Public Use
  Company Number: FR-SERVIER-S21006591

PATIENT

DRUGS (9)
  1. TN UNSPECIFIED [CYTARABINE] [Suspect]
     Active Substance: CYTARABINE
     Indication: T-CELL TYPE ACUTE LEUKAEMIA
     Dosage: 30 MG, QD
     Route: 037
     Dates: start: 20210310, end: 20210314
  2. ONCASPAR [Suspect]
     Active Substance: PEGASPARGASE
     Indication: T-CELL TYPE ACUTE LEUKAEMIA
     Dosage: 2400 IU, SINGLE
     Route: 042
     Dates: start: 20210313, end: 20210313
  3. GLIVEC [Suspect]
     Active Substance: IMATINIB MESYLATE
     Indication: T-CELL TYPE ACUTE LEUKAEMIA
     Dosage: 3.5 DF, QD
     Route: 048
     Dates: start: 20210306, end: 20210401
  4. TN UNSPECIFIED [HYDROCORTISONE SODIUM SUCCINATE] [Suspect]
     Active Substance: HYDROCORTISONE SODIUM SUCCINATE
     Indication: T-CELL TYPE ACUTE LEUKAEMIA
     Dosage: 15 MG, QD
     Route: 037
     Dates: start: 20210310, end: 20210314
  5. ENDOXAN [Suspect]
     Active Substance: CYCLOPHOSPHAMIDE
     Indication: T-CELL TYPE ACUTE LEUKAEMIA
     Dosage: 950 MG, SINGLE
     Route: 042
     Dates: start: 20210310, end: 20210310
  6. TN UNSPECIFIED [METHOTREXATE SODIUM] [Suspect]
     Active Substance: METHOTREXATE SODIUM
     Indication: T-CELL TYPE ACUTE LEUKAEMIA
     Dosage: 12 MG, QD
     Route: 037
     Dates: start: 20210310, end: 20210331
  7. CERUBIDINE [Suspect]
     Active Substance: DAUNORUBICIN HYDROCHLORIDE
     Indication: T-CELL TYPE ACUTE LEUKAEMIA
     Dosage: 23.5 MG, QD
     Route: 042
     Dates: start: 20210309, end: 20210323
  8. TN UNSPECIFIED (VINCRISTINE SULFATE) [Suspect]
     Active Substance: VINCRISTINE SULFATE
     Indication: T-CELL TYPE ACUTE LEUKAEMIA
     Route: 042
     Dates: start: 20210309, end: 20210330
  9. BACTRIM [Suspect]
     Active Substance: SULFAMETHOXAZOLE\TRIMETHOPRIM
     Indication: PROPHYLAXIS
     Dosage: 600 MG, TID
     Route: 048
     Dates: start: 20210312, end: 20210331

REACTIONS (2)
  - Hepatic cytolysis [Recovered/Resolved]
  - Hepatitis cholestatic [Recovering/Resolving]

NARRATIVE: CASE EVENT DATE: 2021
